FAERS Safety Report 23946713 (Version 5)
Quarter: 2024Q4

REPORT INFORMATION
  Report Type: Spontaneous
  Country: HN (occurrence: HN)
  Receive Date: 20240606
  Receipt Date: 20241002
  Transmission Date: 20250115
  Serious: No
  Sender: PFIZER
  Company Number: HN-PFIZER INC-PV202400073363

PATIENT
  Age: 9 Year
  Sex: Male

DRUGS (1)
  1. GENOTROPIN [Suspect]
     Active Substance: SOMATROPIN
     Dosage: 0.9 MG, DAILY

REACTIONS (5)
  - Device leakage [Unknown]
  - Device information output issue [Unknown]
  - Device physical property issue [Unknown]
  - Drug administered in wrong device [Unknown]
  - Device difficult to use [Unknown]
